FAERS Safety Report 8792834 (Version 1)
Quarter: 2012Q4

REPORT INFORMATION
  Report Type: 
  Country: US (occurrence: US)
  Receive Date: 20120918
  Receipt Date: 20120918
  Transmission Date: 20130627
  Serious: No
  Sender: FDA-Public Use
  Company Number: US-ASTRAZENECA-2012SE70461

PATIENT
  Sex: Female

DRUGS (1)
  1. CRESTOR [Suspect]
     Dosage: 2 TO 3 PILLS WEEKLY
     Route: 048

REACTIONS (2)
  - Drug intolerance [Unknown]
  - Intentional drug misuse [Unknown]
